FAERS Safety Report 25961230 (Version 1)
Quarter: 2025Q4

REPORT INFORMATION
  Report Type: Spontaneous
  Country: IL (occurrence: IL)
  Receive Date: 20251027
  Receipt Date: 20251027
  Transmission Date: 20260117
  Serious: Yes (Other)
  Sender: BRISTOL-MYERS SQUIBB COMPANY
  Company Number: IL-BRISTOL-MYERS SQUIBB COMPANY-2025-144557

PATIENT
  Age: 92 Year
  Sex: Male

DRUGS (1)
  1. OPDUALAG [Suspect]
     Active Substance: NIVOLUMAB\RELATLIMAB-RMBW
     Indication: Malignant melanoma of sites other than skin

REACTIONS (3)
  - Delusional disorder, unspecified type [Unknown]
  - Confusional state [Recovered/Resolved]
  - Off label use [Unknown]

NARRATIVE: CASE EVENT DATE: 20250901
